FAERS Safety Report 18215163 (Version 1)
Quarter: 2020Q3

REPORT INFORMATION
  Report Type: Spontaneous
  Country: AU (occurrence: AU)
  Receive Date: 20200831
  Receipt Date: 20200831
  Transmission Date: 20201103
  Serious: Yes (Hospitalization, Other)
  Sender: FDA-Public Use
  Company Number: AU-JUBILANT CADISTA PHARMACEUTICALS-2020JUB00266

PATIENT
  Age: 28 Year
  Sex: Male

DRUGS (3)
  1. CLOMIPRAMINE [Concomitant]
     Active Substance: CLOMIPRAMINE
     Indication: OBSESSIVE-COMPULSIVE DISORDER
     Dosage: 150 MG, 1X/DAY
     Route: 065
  2. QUETIAPINE. [Suspect]
     Active Substance: QUETIAPINE
     Indication: DEPRESSION
     Dosage: 200 MG, 2X/DAY
     Route: 065
  3. QUETIAPINE. [Suspect]
     Active Substance: QUETIAPINE
     Dosage: 1200 MG, ONCE
     Route: 065

REACTIONS (3)
  - Compartment syndrome [Recovering/Resolving]
  - Acute kidney injury [Recovered/Resolved]
  - Rhabdomyolysis [Recovered/Resolved]
